FAERS Safety Report 23044492 (Version 1)
Quarter: 2023Q4

REPORT INFORMATION
  Report Type: Spontaneous
  Country: US (occurrence: US)
  Receive Date: 20231009
  Receipt Date: 20231009
  Transmission Date: 20240110
  Serious: No
  Sender: FDA-Public Use
  Company Number: US-APOTEX-2023AP006249

PATIENT
  Sex: Female

DRUGS (1)
  1. FLUTICASONE PROPIONATE [Suspect]
     Active Substance: FLUTICASONE PROPIONATE
     Indication: Nasal inflammation
     Dosage: 4 DOSAGE FORM, BID (2 SPRAYS IN EACH NOSTRIL)
     Route: 045
     Dates: start: 202303

REACTIONS (5)
  - Nasal congestion [Unknown]
  - Nasal inflammation [Unknown]
  - Condition aggravated [Unknown]
  - Product dose omission issue [Unknown]
  - Product delivery mechanism issue [Unknown]

NARRATIVE: CASE EVENT DATE: 20230301
